FAERS Safety Report 19642826 (Version 1)
Quarter: 2021Q3

REPORT INFORMATION
  Report Type: Spontaneous
  Country: US (occurrence: US)
  Receive Date: 20210730
  Receipt Date: 20210730
  Transmission Date: 20211014
  Serious: Yes (Death)
  Sender: FDA-Public Use
  Company Number: US-PFIZER INC-202100935807

PATIENT
  Age: 71 Year
  Sex: Male
  Weight: 45.36 kg

DRUGS (1)
  1. RAPAMUNE [Suspect]
     Active Substance: SIROLIMUS
     Dosage: 1 MG

REACTIONS (2)
  - Death [Fatal]
  - COVID-19 [Fatal]

NARRATIVE: CASE EVENT DATE: 202107
